FAERS Safety Report 9365635 (Version 1)
Quarter: 2013Q2

REPORT INFORMATION
  Report Type: Spontaneous
  Country: US (occurrence: None)
  Receive Date: 20130624
  Receipt Date: 20130624
  Transmission Date: 20140414
  Serious: Yes (Life-Threatening)
  Sender: FDA-Public Use
  Company Number: None

PATIENT
  Age: 7 Year
  Sex: Female
  Weight: 17.5 kg

DRUGS (2)
  1. ONCASPAR [Suspect]
  2. VINCRISTINE IV [Concomitant]

REACTIONS (1)
  - Anaphylactic reaction [None]
